FAERS Safety Report 23992878 (Version 1)
Quarter: 2024Q2

REPORT INFORMATION
  Report Type: Spontaneous
  Country: CA (occurrence: CA)
  Receive Date: 20240620
  Receipt Date: 20240620
  Transmission Date: 20240716
  Serious: Yes (Death, Life-Threatening, Hospitalization, Disabling, Other)
  Sender: FDA-Public Use
  Company Number: CA-HALEON-2175304

PATIENT
  Age: 44 Year
  Sex: Female

DRUGS (304)
  1. DICLOFENAC DIETHYLAMINE [Suspect]
     Active Substance: DICLOFENAC DIETHYLAMINE
     Indication: Product used for unknown indication
     Route: 058
  2. DICLOFENAC DIETHYLAMINE [Suspect]
     Active Substance: DICLOFENAC DIETHYLAMINE
     Route: 058
  3. DICLOFENAC DIETHYLAMINE [Suspect]
     Active Substance: DICLOFENAC DIETHYLAMINE
     Route: 048
  4. DICLOFENAC DIETHYLAMINE [Suspect]
     Active Substance: DICLOFENAC DIETHYLAMINE
     Route: 065
  5. DICLOFENAC DIETHYLAMINE [Suspect]
     Active Substance: DICLOFENAC DIETHYLAMINE
     Route: 058
  6. DICLOFENAC DIETHYLAMINE [Suspect]
     Active Substance: DICLOFENAC DIETHYLAMINE
     Route: 058
  7. DICLOFENAC DIETHYLAMINE [Suspect]
     Active Substance: DICLOFENAC DIETHYLAMINE
     Route: 065
  8. DICLOFENAC DIETHYLAMINE [Suspect]
     Active Substance: DICLOFENAC DIETHYLAMINE
     Route: 065
  9. DICLOFENAC DIETHYLAMINE [Suspect]
     Active Substance: DICLOFENAC DIETHYLAMINE
     Route: 047
  10. DICLOFENAC POTASSIUM [Suspect]
     Active Substance: DICLOFENAC POTASSIUM
     Indication: Product used for unknown indication
     Route: 065
  11. DICLOFENAC POTASSIUM [Suspect]
     Active Substance: DICLOFENAC POTASSIUM
     Route: 065
  12. ARAVA [Suspect]
     Active Substance: LEFLUNOMIDE
     Indication: Rheumatoid arthritis
     Route: 048
  13. CALTRATE [Suspect]
     Active Substance: CALCIUM CARBONATE
     Indication: Product used for unknown indication
     Route: 065
  14. CALCIUM GLUBIONATE [Suspect]
     Active Substance: CALCIUM GLUBIONATE
     Indication: Product used for unknown indication
     Route: 065
  15. CELEBREX [Suspect]
     Active Substance: CELECOXIB
     Indication: Product used for unknown indication
     Route: 065
  16. CELEBREX [Suspect]
     Active Substance: CELECOXIB
     Route: 065
  17. CELECOXIB [Suspect]
     Active Substance: CELECOXIB
     Indication: Product used for unknown indication
     Route: 065
  18. CERTOLIZUMAB PEGOL [Suspect]
     Active Substance: CERTOLIZUMAB PEGOL
     Indication: Product used for unknown indication
     Route: 065
  19. CETIRIZINE [Suspect]
     Active Substance: CETIRIZINE HYDROCHLORIDE
     Indication: Rheumatoid arthritis
     Route: 048
  20. CETIRIZINE [Suspect]
     Active Substance: CETIRIZINE HYDROCHLORIDE
     Route: 048
  21. CETIRIZINE [Suspect]
     Active Substance: CETIRIZINE HYDROCHLORIDE
     Route: 048
  22. CETIRIZINE [Suspect]
     Active Substance: CETIRIZINE HYDROCHLORIDE
     Route: 048
  23. CETIRIZINE [Suspect]
     Active Substance: CETIRIZINE HYDROCHLORIDE
     Route: 065
  24. CETIRIZINE [Suspect]
     Active Substance: CETIRIZINE HYDROCHLORIDE
     Route: 065
  25. CETIRIZINE HYDROCHLORIDE [Suspect]
     Active Substance: CETIRIZINE HYDROCHLORIDE
     Indication: Rheumatoid arthritis
     Route: 048
  26. CETIRIZINE HYDROCHLORIDE [Suspect]
     Active Substance: CETIRIZINE HYDROCHLORIDE
     Route: 065
  27. CHLORAPREP [Suspect]
     Active Substance: CHLORHEXIDINE GLUCONATE\ISOPROPYL ALCOHOL
     Indication: Product used for unknown indication
     Route: 061
  28. CHLORAPREP [Suspect]
     Active Substance: CHLORHEXIDINE GLUCONATE\ISOPROPYL ALCOHOL
     Route: 061
  29. CHLORHEXIDINE [Suspect]
     Active Substance: CHLORHEXIDINE\CHLORHEXIDINE GLUCONATE
     Indication: Product used for unknown indication
     Route: 065
  30. CHLORHEXIDINE [Suspect]
     Active Substance: CHLORHEXIDINE\CHLORHEXIDINE GLUCONATE
     Route: 061
  31. CHLORHEXIDINE [Suspect]
     Active Substance: CHLORHEXIDINE\CHLORHEXIDINE GLUCONATE
     Route: 002
  32. CHLORHEXIDINE [Suspect]
     Active Substance: CHLORHEXIDINE\CHLORHEXIDINE GLUCONATE
     Route: 048
  33. CHLORHEXIDINE GLUCONATE [Suspect]
     Active Substance: CHLORHEXIDINE GLUCONATE
     Indication: Product used for unknown indication
     Route: 048
  34. CHLORHEXIDINE GLUCONATE [Suspect]
     Active Substance: CHLORHEXIDINE GLUCONATE
     Route: 002
  35. CHLORHEXIDINE GLUCONATE [Suspect]
     Active Substance: CHLORHEXIDINE GLUCONATE
     Route: 061
  36. CIMZIA [Suspect]
     Active Substance: CERTOLIZUMAB PEGOL
     Indication: Rheumatoid arthritis
     Route: 058
  37. CIMZIA [Suspect]
     Active Substance: CERTOLIZUMAB PEGOL
     Route: 058
  38. CIMZIA [Suspect]
     Active Substance: CERTOLIZUMAB PEGOL
     Route: 058
  39. CIMZIA [Suspect]
     Active Substance: CERTOLIZUMAB PEGOL
     Route: 058
  40. CIMZIA [Suspect]
     Active Substance: CERTOLIZUMAB PEGOL
     Route: 058
  41. CORTISONE ACETATE [Suspect]
     Active Substance: CORTISONE ACETATE
     Indication: Rheumatoid arthritis
     Route: 003
  42. CORTISONE ACETATE [Suspect]
     Active Substance: CORTISONE ACETATE
     Route: 003
  43. CORTISONE ACETATE [Suspect]
     Active Substance: CORTISONE ACETATE
     Route: 058
  44. CORTISONE ACETATE [Suspect]
     Active Substance: CORTISONE ACETATE
     Route: 058
  45. CORTISONE ACETATE [Suspect]
     Active Substance: CORTISONE ACETATE
     Route: 048
  46. CORTISONE ACETATE [Suspect]
     Active Substance: CORTISONE ACETATE
     Route: 061
  47. CORTISONE ACETATE [Suspect]
     Active Substance: CORTISONE ACETATE
     Route: 065
  48. CORTISONE ACETATE [Suspect]
     Active Substance: CORTISONE ACETATE
     Route: 048
  49. CORTISONE ACETATE [Suspect]
     Active Substance: CORTISONE ACETATE
     Route: 048
  50. CORTISONE ACETATE [Suspect]
     Active Substance: CORTISONE ACETATE
     Route: 048
  51. COSENTYX [Suspect]
     Active Substance: SECUKINUMAB
     Indication: Rheumatoid arthritis
     Route: 065
  52. COSENTYX [Suspect]
     Active Substance: SECUKINUMAB
     Indication: Psoriatic arthropathy
     Route: 065
  53. DESOXIMETASONE [Suspect]
     Active Substance: DESOXIMETASONE
     Indication: Rheumatoid arthritis
     Route: 061
  54. DESOXIMETASONE [Suspect]
     Active Substance: DESOXIMETASONE
     Route: 061
  55. DESOXIMETASONE [Suspect]
     Active Substance: DESOXIMETASONE
     Route: 061
  56. DESOXIMETASONE [Suspect]
     Active Substance: DESOXIMETASONE
     Route: 061
  57. DESOXIMETASONE [Suspect]
     Active Substance: DESOXIMETASONE
     Route: 058
  58. DESOXIMETASONE [Suspect]
     Active Substance: DESOXIMETASONE
     Route: 058
  59. DESOXIMETASONE [Suspect]
     Active Substance: DESOXIMETASONE
     Route: 058
  60. DESOXIMETASONE [Suspect]
     Active Substance: DESOXIMETASONE
     Route: 058
  61. DESOXIMETASONE [Suspect]
     Active Substance: DESOXIMETASONE
     Route: 058
  62. DESOXIMETASONE [Suspect]
     Active Substance: DESOXIMETASONE
     Route: 042
  63. DESOXIMETASONE [Suspect]
     Active Substance: DESOXIMETASONE
     Route: 003
  64. DESOXIMETASONE [Suspect]
     Active Substance: DESOXIMETASONE
     Route: 058
  65. DESOXIMETASONE [Suspect]
     Active Substance: DESOXIMETASONE
     Route: 003
  66. DESOXIMETASONE [Suspect]
     Active Substance: DESOXIMETASONE
     Route: 003
  67. DESOXIMETASONE [Suspect]
     Active Substance: DESOXIMETASONE
     Route: 003
  68. DESOXIMETASONE [Suspect]
     Active Substance: DESOXIMETASONE
     Route: 003
  69. DESOXIMETASONE [Suspect]
     Active Substance: DESOXIMETASONE
     Route: 003
  70. DESOXIMETASONE [Suspect]
     Active Substance: DESOXIMETASONE
     Route: 003
  71. DESOXIMETASONE [Suspect]
     Active Substance: DESOXIMETASONE
     Route: 003
  72. DESOXIMETASONE [Suspect]
     Active Substance: DESOXIMETASONE
     Route: 048
  73. DESOXIMETASONE [Suspect]
     Active Substance: DESOXIMETASONE
     Route: 048
  74. DESOXIMETASONE [Suspect]
     Active Substance: DESOXIMETASONE
     Route: 048
  75. DESOXIMETASONE [Suspect]
     Active Substance: DESOXIMETASONE
     Route: 048
  76. DESOXIMETASONE [Suspect]
     Active Substance: DESOXIMETASONE
     Route: 048
  77. DESOXIMETASONE [Suspect]
     Active Substance: DESOXIMETASONE
     Route: 048
  78. DESOXIMETASONE [Suspect]
     Active Substance: DESOXIMETASONE
     Route: 048
  79. DESOXIMETASONE [Suspect]
     Active Substance: DESOXIMETASONE
     Route: 048
  80. DESOXIMETASONE [Suspect]
     Active Substance: DESOXIMETASONE
     Route: 048
  81. DESOXIMETASONE [Suspect]
     Active Substance: DESOXIMETASONE
     Route: 048
  82. DESOXIMETASONE [Suspect]
     Active Substance: DESOXIMETASONE
     Route: 065
  83. DESOXIMETASONE [Suspect]
     Active Substance: DESOXIMETASONE
     Route: 065
  84. DESOXIMETASONE [Suspect]
     Active Substance: DESOXIMETASONE
     Route: 065
  85. DESOXIMETASONE [Suspect]
     Active Substance: DESOXIMETASONE
     Route: 065
  86. DESOXIMETASONE [Suspect]
     Active Substance: DESOXIMETASONE
     Route: 065
  87. ACTEMRA [Suspect]
     Active Substance: TOCILIZUMAB
     Indication: Rheumatoid arthritis
     Route: 042
  88. ACTEMRA [Suspect]
     Active Substance: TOCILIZUMAB
     Route: 042
  89. ACTEMRA [Suspect]
     Active Substance: TOCILIZUMAB
     Route: 042
  90. ACTEMRA [Suspect]
     Active Substance: TOCILIZUMAB
     Route: 042
  91. ACTEMRA [Suspect]
     Active Substance: TOCILIZUMAB
     Route: 042
  92. ACTEMRA [Suspect]
     Active Substance: TOCILIZUMAB
     Route: 042
  93. ACTEMRA [Suspect]
     Active Substance: TOCILIZUMAB
     Route: 065
  94. ACTEMRA [Suspect]
     Active Substance: TOCILIZUMAB
     Route: 065
  95. ACTEMRA [Suspect]
     Active Substance: TOCILIZUMAB
     Route: 065
  96. ACETAMINOPHEN [Suspect]
     Active Substance: ACETAMINOPHEN
     Indication: Rheumatoid arthritis
     Route: 065
  97. ADALIMUMAB [Suspect]
     Active Substance: ADALIMUMAB\ISOPROPYL ALCOHOL
     Indication: Psoriatic arthropathy
     Route: 058
  98. ADALIMUMAB [Suspect]
     Active Substance: ADALIMUMAB\ISOPROPYL ALCOHOL
     Dosage: SOLUTION SUBCUTANOEUS
     Route: 048
  99. ALENDRONIC ACID [Suspect]
     Active Substance: ALENDRONIC ACID
     Indication: Rheumatoid arthritis
     Route: 048
  100. ALENDRONIC ACID [Suspect]
     Active Substance: ALENDRONIC ACID
     Route: 065
  101. ALENDRONIC ACID [Suspect]
     Active Substance: ALENDRONIC ACID
     Route: 048
  102. PREDNISONE [Suspect]
     Active Substance: PREDNISONE
     Indication: Rheumatoid arthritis
     Route: 065
  103. PREDNISONE [Suspect]
     Active Substance: PREDNISONE
     Route: 048
  104. APREMILAST [Suspect]
     Active Substance: APREMILAST
     Indication: Product used for unknown indication
     Route: 065
  105. APREMILAST [Suspect]
     Active Substance: APREMILAST
     Route: 042
  106. TUMS ULTRA [Suspect]
     Active Substance: CALCIUM CARBONATE
     Indication: Product used for unknown indication
     Route: 065
  107. DICLOFENAC DIETHYLAMINE [Suspect]
     Active Substance: DICLOFENAC DIETHYLAMINE
     Indication: Product used for unknown indication
     Route: 065
  108. DOXYCYCLINE [Suspect]
     Active Substance: DOXYCYCLINE\DOXYCYCLINE HYCLATE
     Indication: Product used for unknown indication
     Route: 065
  109. ENBREL [Suspect]
     Active Substance: BENZYL ALCOHOL\ETANERCEPT
     Indication: Rheumatoid arthritis
     Route: 058
  110. ENBREL [Suspect]
     Active Substance: BENZYL ALCOHOL\ETANERCEPT
     Indication: Psoriatic arthropathy
     Route: 058
  111. ENBREL [Suspect]
     Active Substance: BENZYL ALCOHOL\ETANERCEPT
     Route: 058
  112. ENBREL [Suspect]
     Active Substance: BENZYL ALCOHOL\ETANERCEPT
     Route: 058
  113. ERELZI [Suspect]
     Active Substance: ETANERCEPT-SZZS
     Indication: Rheumatoid arthritis
     Route: 058
  114. ERELZI [Suspect]
     Active Substance: ETANERCEPT-SZZS
     Route: 065
  115. FLUMETHASONE PIVALATE [Suspect]
     Active Substance: FLUMETHASONE PIVALATE
     Indication: Rheumatoid arthritis
     Route: 065
  116. FOLIC ACID [Suspect]
     Active Substance: FOLIC ACID
     Indication: Rheumatoid arthritis
     Route: 065
  117. FOLIC ACID [Suspect]
     Active Substance: FOLIC ACID
     Route: 065
  118. FOLIC ACID [Suspect]
     Active Substance: FOLIC ACID
     Route: 065
  119. FOLIC ACID [Suspect]
     Active Substance: FOLIC ACID
     Route: 065
  120. FOLIC ACID [Suspect]
     Active Substance: FOLIC ACID
     Route: 065
  121. FOLIC ACID [Suspect]
     Active Substance: FOLIC ACID
     Route: 048
  122. FOLIC ACID [Suspect]
     Active Substance: FOLIC ACID
     Route: 048
  123. FOLIC ACID [Suspect]
     Active Substance: FOLIC ACID
     Route: 058
  124. FOSAMAX [Suspect]
     Active Substance: ALENDRONATE SODIUM
     Indication: Rheumatoid arthritis
     Route: 048
  125. FOSAMAX [Suspect]
     Active Substance: ALENDRONATE SODIUM
     Route: 065
  126. GOLIMUMAB [Suspect]
     Active Substance: GOLIMUMAB
     Indication: Rheumatoid arthritis
     Route: 065
  127. GOLIMUMAB [Suspect]
     Active Substance: GOLIMUMAB
     Route: 058
  128. HUMIRA [Suspect]
     Active Substance: ADALIMUMAB
     Indication: Rheumatoid arthritis
     Route: 058
  129. HUMIRA [Suspect]
     Active Substance: ADALIMUMAB
     Indication: Psoriatic arthropathy
     Route: 058
  130. HUMIRA [Suspect]
     Active Substance: ADALIMUMAB
     Route: 058
  131. HUMIRA [Suspect]
     Active Substance: ADALIMUMAB
     Route: 058
  132. HUMIRA [Suspect]
     Active Substance: ADALIMUMAB
     Route: 058
  133. HUMIRA [Suspect]
     Active Substance: ADALIMUMAB
     Route: 058
  134. HUMIRA [Suspect]
     Active Substance: ADALIMUMAB
     Route: 065
  135. HUMIRA [Suspect]
     Active Substance: ADALIMUMAB
     Route: 065
  136. HYDROCORTISONE [Suspect]
     Active Substance: HYDROCORTISONE\HYDROCORTISONE ACETATE
     Indication: Rheumatoid arthritis
     Route: 048
  137. HYDROCORTISONE [Suspect]
     Active Substance: HYDROCORTISONE\HYDROCORTISONE ACETATE
     Route: 065
  138. HYDROCORTISONE [Suspect]
     Active Substance: HYDROCORTISONE\HYDROCORTISONE ACETATE
     Route: 061
  139. HYDROCORTISONE [Suspect]
     Active Substance: HYDROCORTISONE\HYDROCORTISONE ACETATE
     Route: 058
  140. HYDROCORTISONE [Suspect]
     Active Substance: HYDROCORTISONE\HYDROCORTISONE ACETATE
     Route: 003
  141. SULFASALAZINE [Suspect]
     Active Substance: SULFASALAZINE
     Route: 048
  142. SULFASALAZINE [Suspect]
     Active Substance: SULFASALAZINE
     Route: 048
  143. SULFASALAZINE [Suspect]
     Active Substance: SULFASALAZINE
     Route: 048
  144. SULFASALAZINE [Suspect]
     Active Substance: SULFASALAZINE
     Route: 048
  145. SULFASALAZINE [Suspect]
     Active Substance: SULFASALAZINE
     Route: 048
  146. SULFASALAZINE [Suspect]
     Active Substance: SULFASALAZINE
     Route: 048
  147. SULFASALAZINE [Suspect]
     Active Substance: SULFASALAZINE
     Route: 048
  148. SULFASALAZINE [Suspect]
     Active Substance: SULFASALAZINE
     Route: 048
  149. SULFASALAZINE [Suspect]
     Active Substance: SULFASALAZINE
     Route: 048
  150. SULFASALAZINE [Suspect]
     Active Substance: SULFASALAZINE
     Route: 048
  151. SULFASALAZINE [Suspect]
     Active Substance: SULFASALAZINE
     Route: 048
  152. SULFASALAZINE [Suspect]
     Active Substance: SULFASALAZINE
     Route: 048
  153. SULFASALAZINE [Suspect]
     Active Substance: SULFASALAZINE
     Route: 048
  154. SULFASALAZINE [Suspect]
     Active Substance: SULFASALAZINE
     Route: 065
  155. SULFASALAZINE [Suspect]
     Active Substance: SULFASALAZINE
     Route: 065
  156. SULFASALAZINE [Suspect]
     Active Substance: SULFASALAZINE
     Route: 065
  157. SULFASALAZINE [Suspect]
     Active Substance: SULFASALAZINE
     Route: 065
  158. SULFASALAZINE [Suspect]
     Active Substance: SULFASALAZINE
     Route: 065
  159. SULFASALAZINE [Suspect]
     Active Substance: SULFASALAZINE
     Route: 065
  160. SULFASALAZINE [Suspect]
     Active Substance: SULFASALAZINE
     Route: 065
  161. SULFASALAZINE [Suspect]
     Active Substance: SULFASALAZINE
     Route: 065
  162. SULFASALAZINE [Suspect]
     Active Substance: SULFASALAZINE
     Route: 065
  163. OXYCODONE TEREPHTHALATE [Suspect]
     Active Substance: OXYCODONE TEREPHTHALATE
     Indication: Product used for unknown indication
     Route: 065
  164. OXYCODONE TEREPHTHALATE [Suspect]
     Active Substance: OXYCODONE TEREPHTHALATE
     Route: 016
  165. PANTOPRAZOLE SODIUM [Suspect]
     Active Substance: PANTOPRAZOLE SODIUM
     Indication: Product used for unknown indication
     Route: 065
  166. PERIOGARD [Suspect]
     Active Substance: CHLORHEXIDINE GLUCONATE
     Indication: Product used for unknown indication
     Route: 016
  167. PERIOGARD [Suspect]
     Active Substance: CHLORHEXIDINE GLUCONATE
     Route: 016
  168. PERIOGARD [Suspect]
     Active Substance: CHLORHEXIDINE GLUCONATE
     Route: 048
  169. PERIOGARD [Suspect]
     Active Substance: CHLORHEXIDINE GLUCONATE
     Route: 002
  170. PHTHALYLSULFATHIAZOLE [Suspect]
     Active Substance: PHTHALYLSULFATHIAZOLE
     Indication: Rheumatoid arthritis
     Route: 048
  171. PHTHALYLSULFATHIAZOLE [Suspect]
     Active Substance: PHTHALYLSULFATHIAZOLE
     Route: 048
  172. PHTHALYLSULFATHIAZOLE [Suspect]
     Active Substance: PHTHALYLSULFATHIAZOLE
     Route: 065
  173. PHTHALYLSULFATHIAZOLE [Suspect]
     Active Substance: PHTHALYLSULFATHIAZOLE
     Route: 065
  174. PHTHALYLSULFATHIAZOLE [Suspect]
     Active Substance: PHTHALYLSULFATHIAZOLE
     Route: 048
  175. PHTHALYLSULFATHIAZOLE [Suspect]
     Active Substance: PHTHALYLSULFATHIAZOLE
     Route: 042
  176. PHTHALYLSULFATHIAZOLE [Suspect]
     Active Substance: PHTHALYLSULFATHIAZOLE
     Route: 016
  177. PREDNISONE [Suspect]
     Active Substance: PREDNISONE
     Indication: Rheumatoid arthritis
     Route: 048
  178. PREDNISONE [Suspect]
     Active Substance: PREDNISONE
     Indication: Psoriatic arthropathy
     Route: 048
  179. PREDNISONE [Suspect]
     Active Substance: PREDNISONE
     Indication: Condition aggravated
     Route: 048
  180. PREDNISONE [Suspect]
     Active Substance: PREDNISONE
     Route: 065
  181. PREDNISONE [Suspect]
     Active Substance: PREDNISONE
     Route: 065
  182. PREDNISONE [Suspect]
     Active Substance: PREDNISONE
     Route: 065
  183. PREDNISONE [Suspect]
     Active Substance: PREDNISONE
     Route: 065
  184. PREGABALIN [Suspect]
     Active Substance: PREGABALIN
     Indication: Product used for unknown indication
     Route: 065
  185. STELARA [Suspect]
     Active Substance: USTEKINUMAB
     Indication: Product used for unknown indication
     Route: 065
  186. STELARA [Suspect]
     Active Substance: USTEKINUMAB
     Route: 065
  187. STELARA [Suspect]
     Active Substance: USTEKINUMAB
     Route: 058
  188. SULFAMETHOXAZOLE [Suspect]
     Active Substance: SULFAMETHOXAZOLE
     Indication: Product used for unknown indication
     Route: 065
  189. SULFAMETHOXAZOLE\TRIMETHOPRIM [Suspect]
     Active Substance: SULFAMETHOXAZOLE\TRIMETHOPRIM
     Indication: Product used for unknown indication
     Route: 065
  190. HYDROCORTISONE BUTYRATE [Suspect]
     Active Substance: HYDROCORTISONE BUTYRATE
     Indication: Rheumatoid arthritis
     Route: 058
  191. HYDROCORTISONE SODIUM SUCCINATE [Suspect]
     Active Substance: HYDROCORTISONE SODIUM SUCCINATE
     Indication: Rheumatoid arthritis
     Route: 065
  192. HYDROCORTISONE SODIUM SUCCINATE [Suspect]
     Active Substance: HYDROCORTISONE SODIUM SUCCINATE
     Route: 048
  193. HYDROXYCHLOROQUINE [Suspect]
     Active Substance: HYDROXYCHLOROQUINE
     Indication: Rheumatoid arthritis
     Route: 065
  194. HYDROXYCHLOROQUINE [Suspect]
     Active Substance: HYDROXYCHLOROQUINE
     Route: 065
  195. HYDROXYCHLOROQUINE SULFATE [Suspect]
     Active Substance: HYDROXYCHLOROQUINE SULFATE
     Indication: Rheumatoid arthritis
     Route: 048
  196. HYDROXYCHLOROQUINE SULFATE [Suspect]
     Active Substance: HYDROXYCHLOROQUINE SULFATE
     Indication: Systemic lupus erythematosus
     Route: 058
  197. HYDROXYCHLOROQUINE SULFATE [Suspect]
     Active Substance: HYDROXYCHLOROQUINE SULFATE
     Route: 065
  198. METHOTREXATE [Suspect]
     Active Substance: METHOTREXATE
     Indication: Rheumatoid arthritis
     Route: 048
  199. METHOTREXATE [Suspect]
     Active Substance: METHOTREXATE
     Route: 048
  200. METHOTREXATE [Suspect]
     Active Substance: METHOTREXATE
     Route: 048
  201. METHOTREXATE [Suspect]
     Active Substance: METHOTREXATE
     Route: 048
  202. METHOTREXATE [Suspect]
     Active Substance: METHOTREXATE
     Route: 048
  203. METHOTREXATE [Suspect]
     Active Substance: METHOTREXATE
     Route: 048
  204. METHOTREXATE [Suspect]
     Active Substance: METHOTREXATE
     Route: 048
  205. METHOTREXATE [Suspect]
     Active Substance: METHOTREXATE
     Route: 048
  206. METHOTREXATE [Suspect]
     Active Substance: METHOTREXATE
     Route: 048
  207. METHOTREXATE [Suspect]
     Active Substance: METHOTREXATE
     Route: 048
  208. METHOTREXATE [Suspect]
     Active Substance: METHOTREXATE
     Route: 048
  209. METHOTREXATE [Suspect]
     Active Substance: METHOTREXATE
     Route: 048
  210. METHOTREXATE [Suspect]
     Active Substance: METHOTREXATE
     Route: 048
  211. METHOTREXATE [Suspect]
     Active Substance: METHOTREXATE
     Route: 048
  212. METHOTREXATE [Suspect]
     Active Substance: METHOTREXATE
     Route: 048
  213. METHOTREXATE [Suspect]
     Active Substance: METHOTREXATE
     Route: 048
  214. METHOTREXATE [Suspect]
     Active Substance: METHOTREXATE
     Route: 048
  215. METHOTREXATE [Suspect]
     Active Substance: METHOTREXATE
     Route: 048
  216. METHOTREXATE [Suspect]
     Active Substance: METHOTREXATE
     Route: 048
  217. METHOTREXATE [Suspect]
     Active Substance: METHOTREXATE
     Route: 065
  218. METHOTREXATE [Suspect]
     Active Substance: METHOTREXATE
     Route: 065
  219. METHOTREXATE [Suspect]
     Active Substance: METHOTREXATE
     Route: 065
  220. METHOTREXATE [Suspect]
     Active Substance: METHOTREXATE
     Route: 065
  221. METHOTREXATE [Suspect]
     Active Substance: METHOTREXATE
     Route: 065
  222. METHOTREXATE [Suspect]
     Active Substance: METHOTREXATE
     Route: 065
  223. METHOTREXATE [Suspect]
     Active Substance: METHOTREXATE
     Route: 013
  224. METHOTREXATE [Suspect]
     Active Substance: METHOTREXATE
     Route: 013
  225. METHOTREXATE [Suspect]
     Active Substance: METHOTREXATE
     Route: 048
  226. METHOTREXATE [Suspect]
     Active Substance: METHOTREXATE
     Route: 058
  227. METHOTREXATE [Suspect]
     Active Substance: METHOTREXATE
     Route: 065
  228. METHOTREXATE [Suspect]
     Active Substance: METHOTREXATE
     Route: 065
  229. METHOTREXATE [Suspect]
     Active Substance: METHOTREXATE
     Route: 058
  230. METHOTREXATE [Suspect]
     Active Substance: METHOTREXATE
     Route: 058
  231. METHOTREXATE [Suspect]
     Active Substance: METHOTREXATE
     Route: 058
  232. METHOTREXATE [Suspect]
     Active Substance: METHOTREXATE
     Route: 013
  233. METHOTREXATE [Suspect]
     Active Substance: METHOTREXATE
     Route: 013
  234. METHOTREXATE [Suspect]
     Active Substance: METHOTREXATE
     Route: 048
  235. METHOTREXATE [Suspect]
     Active Substance: METHOTREXATE
     Route: 058
  236. METHOTREXATE [Suspect]
     Active Substance: METHOTREXATE
     Route: 065
  237. METHOTREXATE [Suspect]
     Active Substance: METHOTREXATE
  238. METHOTREXATE [Suspect]
     Active Substance: METHOTREXATE
     Route: 013
  239. METHOTREXATE [Suspect]
     Active Substance: METHOTREXATE
     Route: 037
  240. METHOTREXATE [Suspect]
     Active Substance: METHOTREXATE
     Route: 048
  241. METHOTREXATE [Suspect]
     Active Substance: METHOTREXATE
     Route: 058
  242. METHOTREXATE [Suspect]
     Active Substance: METHOTREXATE
     Route: 058
  243. METHOTREXATE [Suspect]
     Active Substance: METHOTREXATE
     Route: 048
  244. METHOTREXATE [Suspect]
     Active Substance: METHOTREXATE
     Route: 065
  245. MYCOPHENOLATE MOFETIL [Suspect]
     Active Substance: MYCOPHENOLATE MOFETIL
     Indication: Product used for unknown indication
     Route: 065
  246. NAPROXEN SODIUM [Suspect]
     Active Substance: NAPROXEN\NAPROXEN SODIUM
     Indication: Rheumatoid arthritis
     Route: 065
  247. NAPROXEN SODIUM [Suspect]
     Active Substance: NAPROXEN\NAPROXEN SODIUM
     Route: 065
  248. NAPROXEN SODIUM [Suspect]
     Active Substance: NAPROXEN\NAPROXEN SODIUM
     Route: 065
  249. NEOMYCIN [Suspect]
     Active Substance: NEOMYCIN
     Indication: Product used for unknown indication
     Route: 049
  250. ORENCIA [Suspect]
     Active Substance: ABATACEPT
     Indication: Rheumatoid arthritis
     Route: 058
  251. ORENCIA [Suspect]
     Active Substance: ABATACEPT
     Route: 058
  252. ORENCIA [Suspect]
     Active Substance: ABATACEPT
     Route: 058
  253. ORENCIA [Suspect]
     Active Substance: ABATACEPT
     Route: 058
  254. ORENCIA [Suspect]
     Active Substance: ABATACEPT
     Route: 058
  255. ORENCIA [Suspect]
     Active Substance: ABATACEPT
     Route: 058
  256. ORENCIA [Suspect]
     Active Substance: ABATACEPT
     Route: 042
  257. ORENCIA [Suspect]
     Active Substance: ABATACEPT
     Route: 065
  258. ORENCIA [Suspect]
     Active Substance: ABATACEPT
     Route: 065
  259. OTEZLA [Suspect]
     Active Substance: APREMILAST
     Indication: Product used for unknown indication
     Route: 048
  260. OTEZLA [Suspect]
     Active Substance: APREMILAST
     Dosage: TIME INTERVAL: 0.33333333 DAYS
     Route: 048
  261. OXYCODONE [Suspect]
     Active Substance: OXYCODONE\OXYCODONE HYDROCHLORIDE
     Indication: Product used for unknown indication
     Route: 065
  262. OXYCODONE HYDROCHLORIDE [Suspect]
     Active Substance: OXYCODONE HYDROCHLORIDE
     Indication: Product used for unknown indication
     Route: 065
  263. OXYCODONE HYDROCHLORIDE [Suspect]
     Active Substance: OXYCODONE HYDROCHLORIDE
     Route: 065
  264. PSEUDOEPHEDRINE [Suspect]
     Active Substance: PSEUDOEPHEDRINE
     Indication: Product used for unknown indication
     Route: 065
  265. PSEUDOEPHEDRINE HYDROCHLORIDE\TRIPROLIDINE HYDROCHLORIDE [Suspect]
     Active Substance: PSEUDOEPHEDRINE HYDROCHLORIDE\TRIPROLIDINE HYDROCHLORIDE
     Indication: Rheumatoid arthritis
     Route: 065
  266. PSEUDOEPHEDRINE HYDROCHLORIDE\TRIPROLIDINE HYDROCHLORIDE [Suspect]
     Active Substance: PSEUDOEPHEDRINE HYDROCHLORIDE\TRIPROLIDINE HYDROCHLORIDE
     Route: 065
  267. PSEUDOEPHEDRINE HYDROCHLORIDE\TRIPROLIDINE HYDROCHLORIDE [Suspect]
     Active Substance: PSEUDOEPHEDRINE HYDROCHLORIDE\TRIPROLIDINE HYDROCHLORIDE
     Route: 065
  268. CETIRIZINE HYDROCHLORIDE\PSEUDOEPHEDRINE HYDROCHLORIDE [Suspect]
     Active Substance: CETIRIZINE HYDROCHLORIDE\PSEUDOEPHEDRINE HYDROCHLORIDE
     Indication: Rheumatoid arthritis
     Route: 048
  269. CETIRIZINE HYDROCHLORIDE\PSEUDOEPHEDRINE HYDROCHLORIDE [Suspect]
     Active Substance: CETIRIZINE HYDROCHLORIDE\PSEUDOEPHEDRINE HYDROCHLORIDE
     Route: 065
  270. CETIRIZINE HYDROCHLORIDE\PSEUDOEPHEDRINE HYDROCHLORIDE [Suspect]
     Active Substance: CETIRIZINE HYDROCHLORIDE\PSEUDOEPHEDRINE HYDROCHLORIDE
     Route: 065
  271. REMICADE [Suspect]
     Active Substance: INFLIXIMAB
     Indication: Rheumatoid arthritis
     Route: 042
  272. REMICADE [Suspect]
     Active Substance: INFLIXIMAB
     Dosage: POWDER FOR SOLUTION (INTRAVENOUS)
     Route: 065
  273. RITUXIMAB [Suspect]
     Active Substance: RITUXIMAB
     Indication: Rheumatoid arthritis
     Route: 058
  274. RITUXIMAB [Suspect]
     Active Substance: RITUXIMAB
     Route: 042
  275. SULFASALAZINE [Suspect]
     Active Substance: SULFASALAZINE
     Indication: Rheumatoid arthritis
     Route: 065
  276. SULFASALAZINE [Suspect]
     Active Substance: SULFASALAZINE
     Route: 048
  277. SULFASALAZINE [Suspect]
     Active Substance: SULFASALAZINE
     Route: 048
  278. SULFASALAZINE [Suspect]
     Active Substance: SULFASALAZINE
     Route: 048
  279. SULFASALAZINE [Suspect]
     Active Substance: SULFASALAZINE
     Route: 048
  280. SULFASALAZINE [Suspect]
     Active Substance: SULFASALAZINE
     Route: 065
  281. SULFASALAZINE [Suspect]
     Active Substance: SULFASALAZINE
     Route: 048
  282. SIMPONI [Suspect]
     Active Substance: GOLIMUMAB
     Indication: Psoriatic arthropathy
     Route: 052
  283. SIMPONI [Suspect]
     Active Substance: GOLIMUMAB
     Indication: Rheumatoid arthritis
     Route: 042
  284. SIMPONI [Suspect]
     Active Substance: GOLIMUMAB
     Route: 058
  285. SIMPONI [Suspect]
     Active Substance: GOLIMUMAB
     Route: 065
  286. SIMPONI [Suspect]
     Active Substance: GOLIMUMAB
     Route: 058
  287. SIMPONI [Suspect]
     Active Substance: GOLIMUMAB
     Route: 058
  288. TOCILIZUMAB [Suspect]
     Active Substance: TOCILIZUMAB
     Indication: Rheumatoid arthritis
     Route: 058
  289. TOFACITINIB CITRATE [Suspect]
     Active Substance: TOFACITINIB CITRATE
     Indication: Rheumatoid arthritis
  290. TOFACITINIB CITRATE [Suspect]
     Active Substance: TOFACITINIB CITRATE
     Indication: Psoriatic arthropathy
     Route: 048
  291. TOCILIZUMAB [Suspect]
     Active Substance: TOCILIZUMAB
     Indication: Rheumatoid arthritis
     Route: 058
  292. TRAMADOL HYDROCHLORIDE [Suspect]
     Active Substance: TRAMADOL HYDROCHLORIDE
     Indication: Product used for unknown indication
     Route: 065
  293. TRIAMCINOLONE ACETONIDE [Suspect]
     Active Substance: TRIAMCINOLONE ACETONIDE
     Indication: Rheumatoid arthritis
     Dosage: SUSPENSION INTRA- ARTICULAR
     Route: 014
  294. USTEKINUMAB [Suspect]
     Active Substance: USTEKINUMAB
     Indication: Psoriatic arthropathy
     Route: 058
  295. USTEKINUMAB [Suspect]
     Active Substance: USTEKINUMAB
     Route: 065
  296. XELJANZ [Suspect]
     Active Substance: TOFACITINIB CITRATE
     Indication: Rheumatoid arthritis
     Route: 048
  297. XELJANZ [Suspect]
     Active Substance: TOFACITINIB CITRATE
     Route: 048
  298. XELJANZ [Suspect]
     Active Substance: TOFACITINIB CITRATE
     Route: 065
  299. XELJANZ [Suspect]
     Active Substance: TOFACITINIB CITRATE
     Route: 065
  300. XELJANZ [Suspect]
     Active Substance: TOFACITINIB CITRATE
     Route: 065
  301. PREDNISONE [Suspect]
     Active Substance: PREDNISONE
     Indication: Rheumatoid arthritis
     Route: 048
  302. ASCORBIC ACID [Suspect]
     Active Substance: ASCORBIC ACID
     Indication: Product used for unknown indication
     Route: 016
  303. ASCORBIC ACID [Suspect]
     Active Substance: ASCORBIC ACID
     Route: 065
  304. CALTRATE WITH VITAMIN D [Suspect]
     Active Substance: CALCIUM CARBONATE\CHOLECALCIFEROL
     Indication: Product used for unknown indication
     Route: 065

REACTIONS (53)
  - C-reactive protein [Fatal]
  - Dry mouth [Fatal]
  - Duodenal ulcer perforation [Fatal]
  - Facet joint syndrome [Fatal]
  - Fatigue [Fatal]
  - Fibromyalgia [Fatal]
  - Folliculitis [Fatal]
  - General physical health deterioration [Fatal]
  - Glossodynia [Fatal]
  - Hand deformity [Fatal]
  - Swollen joint count increased [Fatal]
  - Synovitis [Fatal]
  - Systemic lupus erythematosus [Fatal]
  - Type 2 diabetes mellitus [Fatal]
  - Urticaria [Fatal]
  - Vomiting [Fatal]
  - Weight increased [Fatal]
  - Wheezing [Fatal]
  - Wound [Fatal]
  - Helicobacter infection [Fatal]
  - Hepatic enzyme increased [Fatal]
  - Hypersensitivity [Fatal]
  - Hypertension [Fatal]
  - Hypoaesthesia [Fatal]
  - Ill-defined disorder [Fatal]
  - Impaired healing [Fatal]
  - Infection [Fatal]
  - Inflammation [Fatal]
  - Infusion related reaction [Fatal]
  - Injury [Fatal]
  - Insomnia [Fatal]
  - Irritable bowel syndrome [Fatal]
  - Joint range of motion decreased [Fatal]
  - Joint swelling [Fatal]
  - Lip dry [Fatal]
  - Liver disorder [Fatal]
  - Malaise [Fatal]
  - Mobility decreased [Fatal]
  - Off label use [Fatal]
  - Pruritus [Fatal]
  - Psoriatic arthropathy [Fatal]
  - Pyrexia [Fatal]
  - Rash [Fatal]
  - Rheumatic fever [Fatal]
  - Rheumatoid arthritis [Fatal]
  - Rheumatoid factor positive [Fatal]
  - Road traffic accident [Fatal]
  - Sciatica [Fatal]
  - Sinusitis [Fatal]
  - Sleep disorder [Fatal]
  - Sleep disorder due to general medical condition, insomnia type [Fatal]
  - Stomatitis [Fatal]
  - Swelling [Fatal]
